FAERS Safety Report 7512937-5 (Version None)
Quarter: 2011Q2

REPORT INFORMATION
  Report Type: 
  Country: None (occurrence: None)
  Receive Date: 20110531
  Receipt Date: 20101130
  Transmission Date: 20111010
  Serious: No
  Sender: FDA-Public Use
  Company Number: US-NOVEN-ALL1-2010-06249

PATIENT
  Sex: Male
  Weight: 73.923 kg

DRUGS (2)
  1. DAYTRANA [Suspect]
     Dosage: 30 MG, 1X/DAY:QD
     Route: 062
     Dates: start: 20101109
  2. ALBUTEROL [Concomitant]
     Dosage: UNK, AS REQ'D (2 PUFFS 4 TIMES DAILY AS NEEDED)
     Route: 055
     Dates: start: 19980101

REACTIONS (4)
  - APPLICATION SITE RASH [None]
  - APPLICATION SITE IRRITATION [None]
  - APPLICATION SITE ERYTHEMA [None]
  - APPLICATION SITE PRURITUS [None]
